FAERS Safety Report 5965644-4 (Version None)
Quarter: 2008Q4

REPORT INFORMATION
  Report Type: 
  Country: None (occurrence: None)
  Receive Date: 20081125
  Receipt Date: 20081114
  Transmission Date: 20090506
  Serious: Yes (Life-Threatening, Hospitalization)
  Sender: FDA-Public Use
  Company Number: JP-ROCHE-597049

PATIENT
  Sex: Female

DRUGS (7)
  1. NAIXAN [Suspect]
     Route: 048
     Dates: start: 20080611, end: 20080613
  2. IMMUNE GLOBULIN INTRAVENOUS (HUMAN) [Concomitant]
     Dosage: DAILY DOSE 1 G/KG
     Route: 041
     Dates: start: 20080602, end: 20080603
  3. CARBENIN [Concomitant]
     Route: 041
     Dates: start: 20080614, end: 20080617
  4. MINOCYCLINE HCL [Concomitant]
     Dates: start: 20080614, end: 20080617
  5. PREDONINE [Concomitant]
     Route: 042
     Dates: start: 20080615
  6. PREDONINE [Concomitant]
     Dosage: REDUCED DOSE
     Route: 042
     Dates: start: 20080623
  7. SANDIMMUNE [Concomitant]
     Route: 041
     Dates: start: 20080615, end: 20080623

REACTIONS (1)
  - HISTIOCYTOSIS HAEMATOPHAGIC [None]
